FAERS Safety Report 4779183-X (Version None)
Quarter: 2005Q3

REPORT INFORMATION
  Report Type: 
  Country: None (occurrence: None)
  Receive Date: 20050923
  Receipt Date: 20050919
  Transmission Date: 20060218
  Serious: Yes (Hospitalization)
  Sender: FDA-Public Use
  Company Number: S05-USA-04329-01

PATIENT
  Age: 82 Year
  Sex: Female

DRUGS (8)
  1. NAMENDA [Suspect]
     Indication: DEMENTIA
     Dosage: 15 MG QD; PO
     Route: 048
     Dates: start: 20050916
  2. NAMENDA [Suspect]
     Indication: DEMENTIA
     Dosage: 5 MG QD; PO
     Route: 048
     Dates: start: 20050902, end: 20050908
  3. NAMENDA [Suspect]
     Indication: DEMENTIA
     Dosage: 5 MG BID; PO
     Route: 048
     Dates: start: 20050909, end: 20050915
  4. TOPROL (METOPROLOL) [Concomitant]
  5. DIOVAN [Concomitant]
  6. PLAVIX [Concomitant]
  7. ISOSORBIDE [Concomitant]
  8. THYROID MEDICATION (NOS) [Concomitant]

REACTIONS (2)
  - ABASIA [None]
  - HYPOTENSION [None]
